FAERS Safety Report 9529182 (Version 1)
Quarter: 2013Q3

REPORT INFORMATION
  Report Type: Not Available
  Country: US (occurrence: US)
  Receive Date: 20130916
  Receipt Date: 20130916
  Transmission Date: 20140515
  Serious: No
  Sender: FDA-Public Use
  Company Number: US-LUNDBECK-DKLU1089322

PATIENT
  Sex: Male

DRUGS (5)
  1. ONFI [Suspect]
     Indication: EPILEPSY
     Route: 048
  2. ONFI [Suspect]
     Indication: TUBEROUS SCLEROSIS
  3. ONFI [Suspect]
     Indication: ASTROCYTOMA
  4. LAMICTAL [Concomitant]
     Indication: PRODUCT USED FOR UNKNOWN INDICATION
  5. DEPAKENE [Concomitant]
     Indication: PRODUCT USED FOR UNKNOWN INDICATION

REACTIONS (2)
  - Balance disorder [Unknown]
  - Drooling [Unknown]
